FAERS Safety Report 5452726-9 (Version None)
Quarter: 2007Q3

REPORT INFORMATION
  Report Type: 
  Country: None (occurrence: None)
  Receive Date: 20070914
  Receipt Date: 20070905
  Transmission Date: 20080115
  Serious: Yes (Other)
  Sender: FDA-Public Use
  Company Number: JP-ASTRAZENECA-2005AP03776

PATIENT
  Age: 81 Year
  Sex: Male

DRUGS (4)
  1. ZOLADEX [Suspect]
     Indication: PROSTATE CANCER
     Route: 058
  2. LEUPROLIDE ACETATE [Suspect]
     Indication: PROSTATE CANCER
  3. LEUPROLIDE ACETATE [Suspect]
  4. LEUPROLIDE ACETATE [Suspect]

REACTIONS (1)
  - SUBCUTANEOUS NODULE [None]
